FAERS Safety Report 8147898-1 (Version None)
Quarter: 2012Q1

REPORT INFORMATION
  Report Type: 
  Country: None (occurrence: None)
  Receive Date: 20120218
  Receipt Date: 20110324
  Transmission Date: 20120608
  Serious: No
  Sender: FDA-Public Use
  Company Number: US-ALLERGAN-1104239US

PATIENT
  Age: 31 Year
  Sex: Female

DRUGS (1)
  1. BOTOX COSMETIC [Suspect]
     Indication: SKIN WRINKLING
     Dosage: 25 UNITS, SINGLE
     Route: 030
     Dates: start: 20110131, end: 20110131

REACTIONS (8)
  - PHOTOPHOBIA [None]
  - FATIGUE [None]
  - BLOOD PRESSURE INCREASED [None]
  - DIZZINESS [None]
  - TACHYCARDIA [None]
  - FACIAL PARESIS [None]
  - NECK PAIN [None]
  - BACK PAIN [None]
